FAERS Safety Report 20955416 (Version 1)
Quarter: 2022Q2

REPORT INFORMATION
  Report Type: Spontaneous
  Country: US (occurrence: US)
  Receive Date: 20220614
  Receipt Date: 20220614
  Transmission Date: 20220721
  Serious: Yes (Other)
  Sender: FDA-Public Use
  Company Number: US-Blueprint Medicines Corporation-181

PATIENT
  Sex: Female

DRUGS (1)
  1. AYVAKIT [Suspect]
     Active Substance: AVAPRITINIB
     Indication: Systemic mastocytosis
     Route: 048
     Dates: start: 20211214

REACTIONS (6)
  - Osteogenesis imperfecta [Unknown]
  - Menstruation irregular [Recovering/Resolving]
  - Vulvovaginal discomfort [Unknown]
  - Vaginal disorder [Unknown]
  - Ehlers-Danlos syndrome [Unknown]
  - Muscle strain [Unknown]
